FAERS Safety Report 24034812 (Version 1)
Quarter: 2024Q3

REPORT INFORMATION
  Report Type: Other
  Country: KR (occurrence: KR)
  Receive Date: 20240701
  Receipt Date: 20240701
  Transmission Date: 20241017
  Serious: Yes (Hospitalization)
  Sender: VIVUS
  Company Number: KR-LOTUS-2023-LOTUS-060615

PATIENT
  Age: 59 Year
  Sex: Female

DRUGS (12)
  1. QSYMIA [Suspect]
     Active Substance: PHENTERMINE HYDROCHLORIDE\TOPIRAMATE
     Indication: Obesity
     Route: 048
     Dates: start: 20220814
  2. QSYMIA [Suspect]
     Active Substance: PHENTERMINE HYDROCHLORIDE\TOPIRAMATE
     Indication: Obesity
     Route: 048
     Dates: start: 20220730, end: 20220812
  3. GLIMEPIRIDE [Concomitant]
     Active Substance: GLIMEPIRIDE
     Indication: Product used for unknown indication
     Route: 048
     Dates: start: 20220722
  4. GEMIGLIPTIN TARTRATE [Concomitant]
     Indication: Product used for unknown indication
     Route: 048
     Dates: start: 20220728
  5. METFORMIN HYDROCHLORIDE [Concomitant]
     Active Substance: METFORMIN HYDROCHLORIDE
     Indication: Product used for unknown indication
     Route: 048
     Dates: start: 20220722
  6. ATORVASTATIN CALCIUM [Concomitant]
     Active Substance: ATORVASTATIN CALCIUM
     Indication: Product used for unknown indication
     Route: 048
     Dates: start: 20220722
  7. THIOCTIC ACID [Concomitant]
     Active Substance: THIOCTIC ACID
     Indication: Product used for unknown indication
     Route: 048
     Dates: start: 20220722
  8. MAGNESIUM OXIDE [Concomitant]
     Active Substance: MAGNESIUM OXIDE
     Indication: Product used for unknown indication
     Route: 048
     Dates: start: 20220727
  9. PELUBIPROFEN [Concomitant]
     Active Substance: PELUBIPROFEN
     Indication: Product used for unknown indication
     Route: 048
     Dates: start: 20220726
  10. LAFUTIDINE [Concomitant]
     Active Substance: LAFUTIDINE
     Indication: Product used for unknown indication
     Route: 048
     Dates: start: 20220726
  11. ACETAMINOPHEN [Concomitant]
     Active Substance: ACETAMINOPHEN
     Indication: Product used for unknown indication
     Route: 048
     Dates: start: 20220726
  12. LACTULOSE CONCENTRATE [Concomitant]
     Indication: Product used for unknown indication
     Route: 048
     Dates: start: 20220727

REACTIONS (1)
  - Diabetes mellitus inadequate control [Recovered/Resolved]

NARRATIVE: CASE EVENT DATE: 20220617
